FAERS Safety Report 6720706-9 (Version None)
Quarter: 2010Q2

REPORT INFORMATION
  Report Type: 
  Country: None (occurrence: None)
  Receive Date: 20100510
  Receipt Date: 20100429
  Transmission Date: 20101027
  Serious: Yes (Other)
  Sender: FDA-Public Use
  Company Number: 2010EU001732

PATIENT
  Age: 71 Year
  Sex: Male

DRUGS (3)
  1. PROGRAF [Suspect]
     Indication: LIVER TRANSPLANT
     Dosage: 2 MG BID ORAL, 1.5 MG, BID , ORAL
     Route: 048
     Dates: start: 20080101
  2. KARDEGIC (ACETYLSALICYLATE LYSINE, ACETYLSALICYLIC ACID) [Concomitant]
  3. NEXIUM [Concomitant]

REACTIONS (9)
  - BLOOD CREATINE PHOSPHOKINASE INCREASED [None]
  - EXCESSIVE OCULAR CONVERGENCE [None]
  - EYE DISORDER [None]
  - GASTROINTESTINAL MOTILITY DISORDER [None]
  - MUSCLE SPASMS [None]
  - MYALGIA [None]
  - RECTAL TENESMUS [None]
  - TINNITUS [None]
  - TREMOR [None]
